FAERS Safety Report 23123104 (Version 1)
Quarter: 2023Q4

REPORT INFORMATION
  Report Type: Spontaneous
  Country: US (occurrence: US)
  Receive Date: 20231030
  Receipt Date: 20231030
  Transmission Date: 20240110
  Serious: No
  Sender: FDA-Public Use
  Company Number: US-BIOGEN-2023BI01233332

PATIENT

DRUGS (1)
  1. VUMERITY [Suspect]
     Active Substance: DIROXIMEL FUMARATE
     Indication: Multiple sclerosis
     Route: 050

REACTIONS (7)
  - Paraesthesia [Unknown]
  - Gastrointestinal disorder [Unknown]
  - Malaise [Unknown]
  - Speech disorder [Unknown]
  - Central auditory processing disorder [Unknown]
  - Pruritus [Unknown]
  - Nausea [Unknown]
